FAERS Safety Report 6420686-X (Version None)
Quarter: 2009Q4

REPORT INFORMATION
  Report Type: 
  Country: None (occurrence: None)
  Receive Date: 20091027
  Receipt Date: 20091013
  Transmission Date: 20100525
  Serious: Yes (Hospitalization)
  Sender: FDA-Public Use
  Company Number: 8053061

PATIENT
  Age: 34 Year
  Sex: Female

DRUGS (1)
  1. CIMZIA [Suspect]
     Indication: RHEUMATOID ARTHRITIS
     Dates: start: 20090925

REACTIONS (9)
  - ARTERIAL STENOSIS LIMB [None]
  - ARTERIAL THROMBOSIS LIMB [None]
  - ARTERY DISSECTION [None]
  - FALL [None]
  - HYPERCOAGULATION [None]
  - JOINT INJURY [None]
  - PERIPHERAL EMBOLISM [None]
  - PERIPHERAL ISCHAEMIA [None]
  - VASOSPASM [None]
